FAERS Safety Report 15260636 (Version 3)
Quarter: 2019Q2

REPORT INFORMATION
  Report Type: Report from Study
  Country: US (occurrence: US)
  Receive Date: 20180809
  Receipt Date: 20190402
  Transmission Date: 20190711
  Serious: Yes (Other)
  Sender: FDA-Public Use
  Company Number: PHEH2018US032292

PATIENT
  Sex: Female
  Weight: 85 kg

DRUGS (2)
  1. COSENTYX [Suspect]
     Active Substance: SECUKINUMAB
     Indication: PSORIASIS
     Dosage: 300 MG, QMO (2 PENS ONCE EVERY FOUR WEEKS)
     Route: 058
     Dates: start: 201804
  2. COSENTYX [Suspect]
     Active Substance: SECUKINUMAB
     Indication: PSORIATIC ARTHROPATHY

REACTIONS (16)
  - Decreased immune responsiveness [Unknown]
  - Diabetic neuropathy [Unknown]
  - Restless legs syndrome [Unknown]
  - Hordeolum [Unknown]
  - Pruritus genital [Unknown]
  - Arthralgia [Unknown]
  - Ocular hyperaemia [Unknown]
  - Neuropathy peripheral [Unknown]
  - Burning sensation [Unknown]
  - Genital burning sensation [Unknown]
  - Stomatitis [Unknown]
  - Lacrimation increased [Unknown]
  - Drug ineffective [Unknown]
  - Pain in extremity [Unknown]
  - Fibromyalgia [Unknown]
  - Pruritus [Unknown]
